FAERS Safety Report 7351969-7 (Version None)
Quarter: 2011Q1

REPORT INFORMATION
  Report Type: 
  Country: None (occurrence: None)
  Receive Date: 20110315
  Receipt Date: 20110311
  Transmission Date: 20110831
  Serious: No
  Sender: FDA-Public Use
  Company Number: US-PFIZER INC-2011054608

PATIENT
  Sex: Female
  Weight: 72.562 kg

DRUGS (4)
  1. PLAQUENIL [Concomitant]
     Dosage: UNK
  2. REVATIO [Suspect]
     Indication: SKIN ULCER
     Dosage: UNK
     Route: 048
  3. PREVACID [Concomitant]
     Dosage: UNK, 2X/DAY
  4. NAPROXEN [Concomitant]
     Dosage: UNK

REACTIONS (3)
  - PRURITUS [None]
  - LIMB INJURY [None]
  - PAIN IN EXTREMITY [None]
